FAERS Safety Report 22108159 (Version 1)
Quarter: 2023Q1

REPORT INFORMATION
  Report Type: Report from Study
  Country: KR (occurrence: KR)
  Receive Date: 20230317
  Receipt Date: 20230317
  Transmission Date: 20230417
  Serious: Yes (Hospitalization, Other)
  Sender: FDA-Public Use
  Company Number: KR-CELLTRION INC.-2023KR005807

PATIENT

DRUGS (28)
  1. INFLIXIMAB [Suspect]
     Active Substance: INFLIXIMAB
     Indication: Rheumatoid arthritis
     Dosage: 120MG(ONCE/2 WEEKS) SI X 1DAY
     Route: 058
     Dates: start: 20221222, end: 20230119
  2. INFLIXIMAB [Suspect]
     Active Substance: INFLIXIMAB
     Dosage: 120 MG, Q2WEEKS
     Route: 058
     Dates: start: 20220824, end: 20221218
  3. INFLIXIMAB [Suspect]
     Active Substance: INFLIXIMAB
     Dosage: 120 MG, Q2WEEKS
     Route: 058
     Dates: start: 20221219
  4. INFLIXIMAB [Suspect]
     Active Substance: INFLIXIMAB
     Dosage: 120 MG, QD
     Route: 058
     Dates: start: 20220223
  5. INFLIXIMAB [Suspect]
     Active Substance: INFLIXIMAB
     Dosage: 120 MG, QD
     Route: 058
     Dates: start: 20220309
  6. INFLIXIMAB [Suspect]
     Active Substance: INFLIXIMAB
     Dosage: 120 MG, QD
     Route: 058
     Dates: start: 20220323
  7. INFLIXIMAB [Suspect]
     Active Substance: INFLIXIMAB
     Dosage: 120 MG, QD
     Route: 058
     Dates: start: 20220406
  8. INFLIXIMAB [Suspect]
     Active Substance: INFLIXIMAB
     Dosage: 120 MG, QD
     Route: 058
     Dates: start: 20220420
  9. INFLIXIMAB [Suspect]
     Active Substance: INFLIXIMAB
     Dosage: 120 MG, QD
     Route: 058
     Dates: start: 20220504
  10. INFLIXIMAB [Suspect]
     Active Substance: INFLIXIMAB
     Dosage: 120 MG, QD
     Route: 058
     Dates: start: 20220518
  11. INFLIXIMAB [Suspect]
     Active Substance: INFLIXIMAB
     Dosage: 120 MG, QD
     Route: 058
     Dates: start: 20220601
  12. INFLIXIMAB [Suspect]
     Active Substance: INFLIXIMAB
     Dosage: 120 MG, QD
     Route: 058
     Dates: start: 20220615
  13. INFLIXIMAB [Suspect]
     Active Substance: INFLIXIMAB
     Dosage: 120 MG, QD
     Route: 058
     Dates: start: 20220629
  14. INFLIXIMAB [Suspect]
     Active Substance: INFLIXIMAB
     Dosage: 120 MG, QD
     Route: 058
     Dates: start: 20220713
  15. INFLIXIMAB [Suspect]
     Active Substance: INFLIXIMAB
     Dosage: 120 MG, QD
     Route: 058
     Dates: start: 20220727
  16. INFLIXIMAB [Suspect]
     Active Substance: INFLIXIMAB
     Dosage: 120 MG, QD
     Route: 058
     Dates: start: 20220810
  17. INFLIXIMAB [Suspect]
     Active Substance: INFLIXIMAB
     Dosage: REMSIMA PEN INJ 1 PEN EACH
     Route: 058
     Dates: start: 20221222
  18. INFLIXIMAB [Suspect]
     Active Substance: INFLIXIMAB
     Dosage: REMSIMA PEN INJ 1 PEN EACH
     Route: 058
     Dates: start: 20221229
  19. INFLIXIMAB [Suspect]
     Active Substance: INFLIXIMAB
     Dosage: REMSIMA PEN INJ 1 PEN EACH
     Route: 058
     Dates: start: 20230105
  20. INFLIXIMAB [Suspect]
     Active Substance: INFLIXIMAB
     Dosage: REMSIMA PEN INJ 1 PEN EACH
     Route: 058
     Dates: start: 20230112
  21. INFLIXIMAB [Suspect]
     Active Substance: INFLIXIMAB
     Dosage: REMSIMA PEN INJ 1 PEN EACH
     Route: 058
     Dates: start: 20230119
  22. METHOTREXATE [Concomitant]
     Active Substance: METHOTREXATE
     Indication: Rheumatoid arthritis
     Dosage: 10 MILLIGRAM, WEEKLY
     Route: 048
     Dates: start: 20230119
  23. ULTRACET ER SEMI [Concomitant]
     Indication: Rheumatoid arthritis
     Dosage: 1 TABLET, DAILY
     Route: 048
     Dates: start: 20220331
  24. PREDNISOLONE [Concomitant]
     Active Substance: PREDNISOLONE
     Indication: Rheumatoid arthritis
     Dosage: 2.5 MILLIGRAM, DAILY
     Route: 048
     Dates: start: 20220331
  25. K CAB [Concomitant]
     Indication: Gastrointestinal disorder prophylaxis
     Dosage: 50 MILLIGRAM, DAILY
     Route: 048
     Dates: start: 20211020
  26. FOLIC ACID [Concomitant]
     Active Substance: FOLIC ACID
     Indication: Chemotherapy side effect prophylaxis
     Dosage: 1 MILLIGRAM, DAILY
     Route: 048
     Dates: start: 20211020
  27. CALCIUM CARBONATE\CHOLECALCIFEROL [Concomitant]
     Active Substance: CALCIUM CARBONATE\CHOLECALCIFEROL
     Indication: Osteoporosis
     Dosage: 1 TABLET, DAILY
     Route: 048
     Dates: start: 20211020
  28. MOSAPRIDE CITRATE [Concomitant]
     Active Substance: MOSAPRIDE CITRATE
     Indication: Gastrointestinal disorder prophylaxis
     Dosage: 5 MILLIGRAM, DAILY
     Route: 048
     Dates: start: 20230119

REACTIONS (5)
  - Pyelonephritis acute [Recovered/Resolved]
  - Ureteritis [Recovered/Resolved]
  - Urinary tract infection [Recovered/Resolved]
  - Off label use [Unknown]
  - Inappropriate schedule of product administration [Unknown]

NARRATIVE: CASE EVENT DATE: 20230103
